FAERS Safety Report 4968972-4 (Version None)
Quarter: 2006Q2

REPORT INFORMATION
  Report Type: 
  Country: None (occurrence: None)
  Receive Date: 20060405
  Receipt Date: 20060322
  Transmission Date: 20061013
  Serious: Yes (Death)
  Sender: FDA-Public Use
  Company Number: 2006-01188

PATIENT
  Age: 19 Year
  Sex: Male

DRUGS (4)
  1. MINOCYCLINE HYDROCHLORIDE [Suspect]
     Indication: ACNE
     Dosage: ORAL
     Route: 048
     Dates: start: 20020425, end: 20030819
  2. FLUOXETINE (FLUOCETINE) [Suspect]
     Indication: ANXIETY
     Dosage: ORAL
     Route: 048
     Dates: start: 20020701, end: 20030819
  3. PROZAC [Suspect]
     Indication: ANXIETY
     Dosage: SEE IMAGE
     Route: 048
     Dates: start: 20020718, end: 20021217
  4. PROZAC [Suspect]
     Indication: ANXIETY
     Dosage: SEE IMAGE
     Route: 048
     Dates: start: 20021218, end: 20030819

REACTIONS (8)
  - ANXIETY [None]
  - COMPLETED SUICIDE [None]
  - DYSPNOEA [None]
  - GUN SHOT WOUND [None]
  - HEAD INJURY [None]
  - IATROGENIC INJURY [None]
  - THYROID DISORDER [None]
  - THYROID FUNCTION TEST ABNORMAL [None]
